FAERS Safety Report 8262296-8 (Version None)
Quarter: 2012Q2

REPORT INFORMATION
  Report Type: 
  Country: None (occurrence: None)
  Receive Date: 20120405
  Receipt Date: 20120323
  Transmission Date: 20120825
  Serious: Yes (Death)
  Sender: FDA-Public Use
  Company Number: US-ROCHE-1053363

PATIENT
  Sex: Female

DRUGS (1)
  1. XELODA [Suspect]
     Indication: COLORECTAL CANCER METASTATIC
     Route: 048
     Dates: start: 20110728

REACTIONS (1)
  - DEATH [None]
